FAERS Safety Report 6141795-9 (Version None)
Quarter: 2009Q2

REPORT INFORMATION
  Report Type: 
  Country: None (occurrence: None)
  Receive Date: 20090402
  Receipt Date: 20090220
  Transmission Date: 20091009
  Serious: No
  Sender: FDA-Public Use
  Company Number: US-ABBOTT-09P-163-0558811-00

PATIENT
  Sex: Female
  Weight: 66.284 kg

DRUGS (2)
  1. LUPRON DEPOT [Suspect]
     Indication: UTERINE LEIOMYOMA
     Route: 030
     Dates: start: 20090218
  2. IRON [Concomitant]
     Indication: ANAEMIA

REACTIONS (2)
  - THROMBOSIS [None]
  - VAGINAL HAEMORRHAGE [None]
